FAERS Safety Report 6007657-2 (Version None)
Quarter: 2008Q4

REPORT INFORMATION
  Report Type: 
  Country: None (occurrence: None)
  Receive Date: 20081217
  Receipt Date: 20080331
  Transmission Date: 20090506
  Serious: No
  Sender: FDA-Public Use
  Company Number: US-ASTRAZENECA-2008UW06469

PATIENT
  Age: 45 Year
  Sex: Male

DRUGS (8)
  1. CRESTOR [Suspect]
     Route: 048
     Dates: start: 20070901
  2. FUROSEMIDE [Concomitant]
  3. TRICOR [Concomitant]
  4. CHLOR-KON [Concomitant]
  5. SPIRONOLACTONE [Concomitant]
  6. METOPROLOL TARTRATE [Concomitant]
  7. DIGOXIN [Concomitant]
  8. METFORMIN HCL [Concomitant]

REACTIONS (2)
  - BREAST OEDEMA [None]
  - BREAST TENDERNESS [None]
